FAERS Safety Report 16010846 (Version 1)
Quarter: 2019Q1

REPORT INFORMATION
  Report Type: Spontaneous
  Country: US (occurrence: US)
  Receive Date: 20190227
  Receipt Date: 20190227
  Transmission Date: 20190418
  Serious: No
  Sender: FDA-Public Use
  Company Number: US-CHARTWELL PHARMA-2063256

PATIENT
  Sex: Male
  Weight: 18.14 kg

DRUGS (1)
  1. DOXYCYCLINE. [Suspect]
     Active Substance: DOXYCYCLINE
     Indication: LYME DISEASE
     Dates: start: 20181029

REACTIONS (2)
  - Product use issue [Unknown]
  - Product storage error [Unknown]
